FAERS Safety Report 8344898-3 (Version None)
Quarter: 2012Q2

REPORT INFORMATION
  Report Type: 
  Country: None (occurrence: None)
  Receive Date: 20120508
  Receipt Date: 20120504
  Transmission Date: 20120825
  Serious: Yes (Death, Hospitalization)
  Sender: FDA-Public Use
  Company Number: US-GILEAD-2012-0054030

PATIENT
  Sex: Female

DRUGS (21)
  1. LETAIRIS [Suspect]
     Indication: PULMONARY HYPERTENSION
     Dosage: 5 MG, UNK
     Route: 048
     Dates: start: 20120316, end: 20120419
  2. SITAGLIPTIN [Concomitant]
  3. ESOMEPRAZOLE [Concomitant]
  4. CITALOPRAM HYDROBROMIDE [Concomitant]
  5. FUROSEMIDE [Concomitant]
  6. LEVOTHYROXINE SODIUM [Concomitant]
  7. WARFARIN SODIUM [Concomitant]
  8. CALCIUM CARBONATE WITH VITAMIN D3 [Concomitant]
  9. MULTI-VITAMINS [Concomitant]
  10. NYSTATIN [Concomitant]
  11. SILDENAFIL [Concomitant]
  12. RANITIDINE [Concomitant]
  13. LETAIRIS [Suspect]
     Indication: SCLERODERMA
  14. ALBUTEROL [Concomitant]
  15. DOCUSATE SODIUM [Concomitant]
  16. DILTIAZEM [Concomitant]
  17. ALBUTEROL [Concomitant]
  18. BENZONATATE [Concomitant]
  19. SPIRONOLACTONE [Concomitant]
  20. SODIUM CHLORIDE [Concomitant]
  21. DIGOXIN [Concomitant]

REACTIONS (2)
  - PRESYNCOPE [None]
  - OLIGURIA [None]
